FAERS Safety Report 19722667 (Version 1)
Quarter: 2021Q3

REPORT INFORMATION
  Report Type: Spontaneous
  Country: NL (occurrence: DE)
  Receive Date: 20210819
  Receipt Date: 20210819
  Transmission Date: 20211014
  Serious: Yes (Other)
  Sender: FDA-Public Use
  Company Number: DE-FRESENIUS KABI-FK202108474

PATIENT
  Age: 70 Year
  Sex: Female

DRUGS (3)
  1. SODIUM CHLORIDE (MANUFACTURER UNKNOWN) [Suspect]
     Active Substance: SODIUM CHLORIDE
     Indication: PRODUCT USED FOR UNKNOWN INDICATION
     Dosage: 1000 ML
     Route: 065
  2. PACLITAXEL ALBUMIN [Suspect]
     Active Substance: PACLITAXEL
     Indication: BREAST CANCER
     Dosage: 200 MG
     Route: 041
     Dates: start: 20210706
  3. SODIUM CHLORIDE (MANUFACTURER UNKNOWN) [Suspect]
     Active Substance: SODIUM CHLORIDE
     Dosage: 500 ML
     Route: 065

REACTIONS (15)
  - Nausea [Unknown]
  - Mucosal disorder [Unknown]
  - Eye pain [Unknown]
  - Pyrexia [Unknown]
  - Skin exfoliation [Unknown]
  - Musculoskeletal pain [Unknown]
  - Paraesthesia [Unknown]
  - Migraine [Unknown]
  - Nasal oedema [Unknown]
  - Dizziness [Unknown]
  - Pharyngitis [Unknown]
  - Vomiting [Unknown]
  - Myocardial infarction [Unknown]
  - Bile output abnormal [Unknown]
  - Chills [Unknown]

NARRATIVE: CASE EVENT DATE: 20210706
